FAERS Safety Report 6233454-9 (Version None)
Quarter: 2009Q2

REPORT INFORMATION
  Report Type: 
  Country: None (occurrence: None)
  Receive Date: 20090616
  Receipt Date: 20090616
  Transmission Date: 20091009
  Serious: Yes (Hospitalization)
  Sender: FDA-Public Use
  Company Number: None

PATIENT
  Age: 69 Year
  Sex: Female
  Weight: 127.5 kg

DRUGS (7)
  1. LISINOPRIL [Suspect]
     Indication: HYPERTENSION
     Dosage: 40 MG DAILY PO
     Route: 048
     Dates: start: 20080304, end: 20090408
  2. ACTOS [Concomitant]
  3. ASPIRIN [Concomitant]
  4. VICODIN [Concomitant]
  5. FLEXERIL [Concomitant]
  6. SIMVASTATIN [Concomitant]
  7. LISINOPRIL [Concomitant]

REACTIONS (2)
  - ANGIOEDEMA [None]
  - DYSPHAGIA [None]
